FAERS Safety Report 6509551-7 (Version None)
Quarter: 2009Q4

REPORT INFORMATION
  Report Type: 
  Country: None (occurrence: None)
  Receive Date: 20091222
  Receipt Date: 20091214
  Transmission Date: 20100525
  Serious: Yes (Other)
  Sender: FDA-Public Use
  Company Number: US-ROCHE-658572

PATIENT
  Sex: Female
  Weight: 50.3 kg

DRUGS (7)
  1. BONIVA [Suspect]
     Indication: OSTEOPENIA
     Route: 048
     Dates: start: 20081125, end: 20090917
  2. HYDROCHLOROTHIAZIDE [Concomitant]
     Indication: BLOOD PRESSURE
     Route: 048
     Dates: start: 20050101
  3. CENTRUM SILVER [Concomitant]
     Route: 048
  4. XALATAN [Concomitant]
     Indication: GLAUCOMA
     Dosage: ROUTE: EYE; DOSE: ONE DROP IN EACH EYE
  5. TRUSOPT [Concomitant]
     Indication: GLAUCOMA
     Dosage: DOSE: ONE DROP IN EACH EYE
  6. TYLENOL (CAPLET) [Concomitant]
     Indication: ARTHRITIS
     Dosage: AS NEEDED
     Route: 048
  7. PREMARIN [Concomitant]
     Dosage: ONE APPLICATION IN VAGINA
     Dates: start: 20040101

REACTIONS (6)
  - APHTHOUS STOMATITIS [None]
  - DYSGEUSIA [None]
  - GINGIVAL DISORDER [None]
  - GINGIVITIS [None]
  - PARAESTHESIA ORAL [None]
  - THERMOHYPOAESTHESIA [None]
